FAERS Safety Report 25730551 (Version 1)
Quarter: 2025Q3

REPORT INFORMATION
  Report Type: Spontaneous
  Country: RU (occurrence: RU)
  Receive Date: 20250827
  Receipt Date: 20250827
  Transmission Date: 20251021
  Serious: Yes (Other)
  Sender: ROCHE
  Company Number: RU-ROCHE-10000368256

PATIENT
  Age: 37 Year
  Sex: Female

DRUGS (10)
  1. TRASTUZUMAB [Suspect]
     Active Substance: TRASTUZUMAB
     Indication: Invasive ductal breast carcinoma
     Route: 042
     Dates: start: 20221129
  2. TRASTUZUMAB [Suspect]
     Active Substance: TRASTUZUMAB
     Route: 042
     Dates: start: 20221129
  3. TRASTUZUMAB [Suspect]
     Active Substance: TRASTUZUMAB
     Route: 042
     Dates: start: 20230222, end: 20230315
  4. PERTUZUMAB [Suspect]
     Active Substance: PERTUZUMAB
     Indication: Invasive ductal breast carcinoma
     Route: 042
     Dates: start: 20221129
  5. PERTUZUMAB [Suspect]
     Active Substance: PERTUZUMAB
     Route: 042
     Dates: start: 20221129
  6. PERTUZUMAB [Suspect]
     Active Substance: PERTUZUMAB
     Route: 042
     Dates: start: 20230222, end: 20230315
  7. ADO-TRASTUZUMAB EMTANSINE [Suspect]
     Active Substance: ADO-TRASTUZUMAB EMTANSINE
     Indication: Invasive ductal breast carcinoma
     Route: 042
     Dates: start: 20240626
  8. DOCETAXEL [Suspect]
     Active Substance: DOCETAXEL
     Indication: Invasive ductal breast carcinoma
     Route: 042
     Dates: start: 20221129
  9. DOCETAXEL [Suspect]
     Active Substance: DOCETAXEL
     Route: 042
     Dates: start: 20230222, end: 20230315
  10. TAMOXIFEN [Suspect]
     Active Substance: TAMOXIFEN
     Indication: Invasive ductal breast carcinoma
     Route: 065

REACTIONS (15)
  - Anaemia [Unknown]
  - Respiratory tract infection viral [Unknown]
  - Leukopenia [Unknown]
  - Neutropenia [Unknown]
  - Hepatitis toxic [Unknown]
  - Osteosclerosis [Unknown]
  - Ill-defined disorder [Unknown]
  - Pathological fracture [Unknown]
  - Sinus congestion [Unknown]
  - Metastases to central nervous system [Unknown]
  - Central nervous system lesion [Unknown]
  - Metastases to breast [Unknown]
  - Metastases to bone [Unknown]
  - Catarrh [Unknown]
  - Oedema [Unknown]
